FAERS Safety Report 12534348 (Version 1)
Quarter: 2016Q3

REPORT INFORMATION
  Report Type: Spontaneous
  Country: US (occurrence: US)
  Receive Date: 20160706
  Receipt Date: 20160706
  Transmission Date: 20161109
  Serious: No
  Sender: FDA-Public Use
  Company Number: US-PURDUE-USA-2016-0131956

PATIENT
  Age: 48 Year
  Sex: Female

DRUGS (4)
  1. BUTRANS [Suspect]
     Active Substance: BUPRENORPHINE
     Dosage: 15 MCG/HR, UNK
     Route: 062
  2. BUTRANS [Suspect]
     Active Substance: BUPRENORPHINE
     Dosage: 5 MCG/HR, WEEKLY
     Route: 062
     Dates: start: 2010
  3. BUTRANS [Suspect]
     Active Substance: BUPRENORPHINE
     Indication: PAIN
     Dosage: 20 MCG/HR, WEEKLY
     Route: 062
  4. BUTRANS [Suspect]
     Active Substance: BUPRENORPHINE
     Dosage: 10 MCG/HR, UNK
     Route: 062

REACTIONS (10)
  - Malaise [Unknown]
  - Abdominal discomfort [Unknown]
  - Product adhesion issue [Not Recovered/Not Resolved]
  - Movement disorder [Unknown]
  - Chills [Unknown]
  - Disturbance in attention [Unknown]
  - Drug ineffective [Not Recovered/Not Resolved]
  - Drug withdrawal syndrome [Unknown]
  - Dizziness [Unknown]
  - Nausea [Unknown]

NARRATIVE: CASE EVENT DATE: 2010
